FAERS Safety Report 9696305 (Version 1)
Quarter: 2013Q4

REPORT INFORMATION
  Report Type: Spontaneous
  Country: US (occurrence: US)
  Receive Date: 20131119
  Receipt Date: 20131119
  Transmission Date: 20140711
  Serious: No
  Sender: FDA-Public Use
  Company Number: US-009507513-1311USA007445

PATIENT
  Sex: Female

DRUGS (1)
  1. LOTRIMIN AF [Suspect]
     Indication: FUNGAL INFECTION
     Dosage: UNK, UNKNOWN
     Route: 061
     Dates: start: 201310

REACTIONS (2)
  - Drug administered at inappropriate site [Unknown]
  - Drug ineffective [Unknown]
